FAERS Safety Report 13203153 (Version 2)
Quarter: 2017Q2

REPORT INFORMATION
  Report Type: Other
  Country: US (occurrence: US)
  Receive Date: 20170209
  Receipt Date: 20170601
  Transmission Date: 20170830
  Serious: Yes (Hospitalization, Other)
  Sender: FDA-Public Use
  Company Number: US-ACORDA-ACO_133561_2017

PATIENT
  Age: 70 Year
  Sex: Female

DRUGS (2)
  1. AMPYRA [Suspect]
     Active Substance: DALFAMPRIDINE
     Indication: PRODUCT USED FOR UNKNOWN INDICATION
     Dosage: UNK
     Route: 065
     Dates: end: 201507
  2. TECFIDERA [Suspect]
     Active Substance: DIMETHYL FUMARATE
     Indication: MULTIPLE SCLEROSIS
     Dosage: 240 MG (2 FOR 1 DAY)
     Route: 065
     Dates: start: 20140501

REACTIONS (9)
  - Multiple sclerosis relapse [Recovered/Resolved]
  - Hip fracture [Unknown]
  - Urinary tract infection [Recovered/Resolved]
  - Delirium [Unknown]
  - Fall [Unknown]
  - Influenza [Unknown]
  - Memory impairment [Unknown]
  - Gait disturbance [Recovered/Resolved]
  - Femur fracture [Unknown]

NARRATIVE: CASE EVENT DATE: 201612
